FAERS Safety Report 5601702-1 (Version None)
Quarter: 2008Q1

REPORT INFORMATION
  Report Type: 
  Country: None (occurrence: None)
  Receive Date: 20080124
  Receipt Date: 20080117
  Transmission Date: 20080703
  Serious: Yes (Death, Other)
  Sender: FDA-Public Use
  Company Number: JP-AVENTIS-200810190JP

PATIENT
  Age: 72 Year
  Sex: Female

DRUGS (1)
  1. TAXOTERE [Suspect]
     Dates: start: 20071020

REACTIONS (5)
  - ARTHRALGIA [None]
  - BONE MARROW FAILURE [None]
  - DIARRHOEA [None]
  - RENAL FAILURE [None]
  - STOMATITIS [None]
